FAERS Safety Report 8234051-6 (Version None)
Quarter: 2012Q1

REPORT INFORMATION
  Report Type: 
  Country: None (occurrence: None)
  Receive Date: 20120326
  Receipt Date: 20120326
  Transmission Date: 20120608
  Serious: Yes (Hospitalization)
  Sender: FDA-Public Use
  Company Number: None

PATIENT
  Age: 52 Year
  Sex: Male
  Weight: 102.9 kg

DRUGS (2)
  1. SORAFENIB [Suspect]
     Indication: COLORECTAL CANCER METASTATIC
     Dosage: 200.0 MG
     Route: 048
     Dates: start: 20120220, end: 20120312
  2. XELODA [Suspect]

REACTIONS (11)
  - DYSSTASIA [None]
  - DRUG INEFFECTIVE [None]
  - VOMITING [None]
  - PALMAR-PLANTAR ERYTHRODYSAESTHESIA SYNDROME [None]
  - IMPAIRED WORK ABILITY [None]
  - HEPATIC FAILURE [None]
  - NAUSEA [None]
  - HEPATIC PAIN [None]
  - ACTIVITIES OF DAILY LIVING IMPAIRED [None]
  - CONSTIPATION [None]
  - DISEASE PROGRESSION [None]
